FAERS Safety Report 8315592-X (Version None)
Quarter: 2012Q2

REPORT INFORMATION
  Report Type: 
  Country: None (occurrence: None)
  Receive Date: 20120426
  Receipt Date: 20120417
  Transmission Date: 20120825
  Serious: Yes (Other)
  Sender: FDA-Public Use
  Company Number: US-ROCHE-1009157

PATIENT
  Sex: Male

DRUGS (1)
  1. ZELBORAF [Suspect]
     Indication: PRODUCT USED FOR UNKNOWN INDICATION

REACTIONS (8)
  - BRAIN NEOPLASM [None]
  - MELANOCYTIC NAEVUS [None]
  - DIARRHOEA [None]
  - DYSPNOEA AT REST [None]
  - JOINT SWELLING [None]
  - HYPERKERATOSIS [None]
  - PAIN IN EXTREMITY [None]
  - DIZZINESS [None]
